FAERS Safety Report 10357119 (Version 1)
Quarter: 2014Q3

REPORT INFORMATION
  Report Type: Spontaneous
  Country: US (occurrence: US)
  Receive Date: 20140801
  Receipt Date: 20140801
  Transmission Date: 20150326
  Serious: No
  Sender: FDA-Public Use
  Company Number: US-BAYER-2014-111300

PATIENT
  Sex: Female

DRUGS (2)
  1. ALEVE [Suspect]
     Active Substance: NAPROXEN SODIUM
     Indication: SCIATICA
     Dosage: 2 DF, QD
     Route: 048
     Dates: start: 2011
  2. ALEVE [Suspect]
     Active Substance: NAPROXEN SODIUM
     Indication: SCIATICA
     Dosage: 1 DF, QD
     Route: 048
     Dates: start: 2014

REACTIONS (3)
  - Dyspepsia [Unknown]
  - Contusion [Recovered/Resolved]
  - Incorrect drug administration duration [None]

NARRATIVE: CASE EVENT DATE: 2011
